FAERS Safety Report 20473813 (Version 1)
Quarter: 2022Q1

REPORT INFORMATION
  Report Type: Spontaneous
  Country: CN (occurrence: CN)
  Receive Date: 20220215
  Receipt Date: 20220215
  Transmission Date: 20220423
  Serious: Yes (Disabling)
  Sender: FDA-Public Use
  Company Number: CN-ABBVIE-22K-035-4275241-00

PATIENT
  Age: 65 Year
  Sex: Male
  Weight: 70 kg

DRUGS (4)
  1. VALPROATE SODIUM [Suspect]
     Active Substance: VALPROATE SODIUM
     Indication: Cerebral haemorrhage
     Route: 065
     Dates: start: 20190413, end: 20190419
  2. CEFTRIAXONE SODIUM [Suspect]
     Active Substance: CEFTRIAXONE SODIUM
     Indication: Cerebral haemorrhage
     Route: 041
     Dates: start: 20190413, end: 20190419
  3. LOSEC [Suspect]
     Active Substance: OMEPRAZOLE
     Indication: Cerebral haemorrhage
     Route: 041
     Dates: start: 20190413, end: 20190420
  4. PIRACETAM [Suspect]
     Active Substance: PIRACETAM
     Indication: Cerebral haemorrhage
     Route: 041
     Dates: start: 20190413, end: 20190420

REACTIONS (1)
  - Hepatic function abnormal [Recovering/Resolving]

NARRATIVE: CASE EVENT DATE: 20190418
